FAERS Safety Report 24284036 (Version 1)
Quarter: 2024Q3

REPORT INFORMATION
  Report Type: Spontaneous
  Country: AU (occurrence: AU)
  Receive Date: 20240905
  Receipt Date: 20240905
  Transmission Date: 20241016
  Serious: Yes (Other)
  Sender: AMGEN
  Company Number: AU-TAKEDA-2024TUS086754

PATIENT

DRUGS (3)
  1. PANITUMUMAB [Suspect]
     Active Substance: PANITUMUMAB
     Indication: Product used for unknown indication
     Dosage: 6 MILLIGRAM/SQ. METER, BID
     Route: 042
  2. IRINOTECAN HYDROCHLORIDE [Suspect]
     Active Substance: IRINOTECAN HYDROCHLORIDE
     Indication: Product used for unknown indication
     Dosage: 150 MILLIGRAM/SQ. METER, BID
     Route: 042
  3. TIPIRACIL HYDROCHLORIDE\TRIFLURIDINE [Suspect]
     Active Substance: TIPIRACIL HYDROCHLORIDE\TRIFLURIDINE
     Indication: Product used for unknown indication
     Dosage: 20 MILLIGRAM/SQ. METER, BID
     Route: 048

REACTIONS (1)
  - Neutropenia [Unknown]
